FAERS Safety Report 5910100-2 (Version None)
Quarter: 2008Q4

REPORT INFORMATION
  Report Type: 
  Country: None (occurrence: None)
  Receive Date: 20081007
  Receipt Date: 20070912
  Transmission Date: 20090506
  Serious: No
  Sender: FDA-Public Use
  Company Number: US-ASTRAZENECA-2007UW21613

PATIENT
  Age: 72 Year
  Sex: Female
  Weight: 49.9 kg

DRUGS (1)
  1. ARIMIDEX [Suspect]
     Indication: BREAST CANCER
     Route: 048

REACTIONS (6)
  - ALOPECIA [None]
  - BONE PAIN [None]
  - CONSTIPATION [None]
  - FREQUENT BOWEL MOVEMENTS [None]
  - NAUSEA [None]
  - WEIGHT INCREASED [None]
